FAERS Safety Report 16392697 (Version 1)
Quarter: 2019Q2

REPORT INFORMATION
  Report Type: Spontaneous
  Country: US (occurrence: US)
  Receive Date: 20190429
  Receipt Date: 20190429
  Transmission Date: 20190711
  Serious: No
  Sender: FDA-Public Use
  Company Number: None

PATIENT
  Age: 66 Year
  Sex: Female

DRUGS (1)
  1. COPAXONE [Suspect]
     Active Substance: GLATIRAMER ACETATE
     Dates: start: 20100101

REACTIONS (6)
  - Product dose omission [None]
  - Insurance issue [None]
  - Condition aggravated [None]
  - Fatigue [None]
  - Pain [None]
  - Emotional disorder [None]

NARRATIVE: CASE EVENT DATE: 20190429
